FAERS Safety Report 5661609-0 (Version None)
Quarter: 2008Q1

REPORT INFORMATION
  Report Type: 
  Country: None (occurrence: None)
  Receive Date: 20080312
  Receipt Date: 20080226
  Transmission Date: 20080703
  Serious: Yes (Death)
  Sender: FDA-Public Use
  Company Number: FR-ROCHE-545087

PATIENT
  Age: 71 Year
  Sex: Female
  Weight: 67 kg

DRUGS (22)
  1. SAQUINAVIR [Suspect]
     Indication: DRUG USE FOR UNKNOWN INDICATION
     Dosage: TWO DOSE FORMS IN THE MORNING AND IN THE EVENNING.
     Route: 065
     Dates: end: 20080116
  2. EPOETIN BETA [Suspect]
     Indication: DRUG USE FOR UNKNOWN INDICATION
     Route: 065
  3. BROMAZEPAM [Suspect]
     Indication: DRUG USE FOR UNKNOWN INDICATION
     Dosage: 1/4 TABLET IN THE MORNING AND IN THE EVENING.
     Route: 065
  4. SULFAMETHOXAZOLE AND TRIMETHOPRIM [Suspect]
     Indication: PROPHYLAXIS
     Route: 065
  5. TRUVADA [Concomitant]
     Dosage: ONE TABLET IN THE EVENING.
  6. NORVIR [Concomitant]
  7. AZADOSE [Concomitant]
  8. SPECIAFOLDINE [Concomitant]
  9. INIPOMP [Concomitant]
  10. FORLAX [Concomitant]
  11. PRIMPERAN INJ [Concomitant]
  12. MOUTHWASH NOS [Concomitant]
  13. TRIFLUCAN [Concomitant]
  14. NEUPOGEN [Concomitant]
     Dosage: DRUG: NEUPOGEN 30. DOSAGE REGIME: 1 INJECTION SUBCUTANEOUSLY EVERY 48 HOURS.
     Route: 058
  15. CYCLOPHOSPHAMIDE [Concomitant]
     Dosage: ON DAY 1.
     Dates: start: 20080109
  16. DOXORUBICIN HCL [Concomitant]
     Dosage: ON DAY 1.
     Dates: start: 20080109
  17. ONCOVIN [Concomitant]
     Dosage: ON DAY 1.
     Dates: start: 20080109
  18. PREDNISONE [Concomitant]
     Dosage: ON DAY 1 TO DAY 5.
  19. CYTARABINE [Concomitant]
     Route: 037
  20. METHOTREXATE [Concomitant]
     Route: 037
  21. HYDROCORTISONE [Concomitant]
     Route: 037
  22. KALETRA [Concomitant]

REACTIONS (2)
  - LUNG INFECTION PSEUDOMONAL [None]
  - MULTI-ORGAN FAILURE [None]
